FAERS Safety Report 10409663 (Version 1)
Quarter: 2014Q3

REPORT INFORMATION
  Report Type: Spontaneous
  Country: US (occurrence: None)
  Receive Date: 20140822
  Receipt Date: 20140822
  Transmission Date: 20150326
  Serious: Yes (Life-Threatening, Hospitalization, Other)
  Sender: FDA-Public Use
  Company Number: US-H14001-14-00407

PATIENT
  Age: 46 Year
  Sex: Female

DRUGS (2)
  1. CLINDAMYCIN [Suspect]
     Active Substance: CLINDAMYCIN\CLINDAMYCIN PHOSPHATE
     Indication: TOOTH ABSCESS
     Route: 042
  2. AMOXICLLIN(AMOXICILLIN)(UKNOWN)(AMOXICILLIN) [Concomitant]

REACTIONS (3)
  - Hypersensitivity [None]
  - Anaphylactic reaction [None]
  - Blood pressure decreased [None]
